FAERS Safety Report 4352440-7 (Version None)
Quarter: 2004Q2

REPORT INFORMATION
  Report Type: 
  Country: None (occurrence: None)
  Receive Date: 20040428
  Receipt Date: 20040413
  Transmission Date: 20050107
  Serious: Yes (Hospitalization)
  Sender: FDA-Public Use
  Company Number: 04P-083-0257249-00

PATIENT
  Age: 76 Year
  Sex: Male
  Weight: 80 kg

DRUGS (5)
  1. HUMIRA [Suspect]
     Indication: RHEUMATOID ARTHRITIS
     Dosage: 1 IN 2 WK, SUBCUTANEOUS
     Route: 058
     Dates: start: 20001206, end: 20040204
  2. PREDNISONE [Concomitant]
  3. AMLODIPINE [Concomitant]
  4. CAPTOPRIL [Concomitant]
  5. HYDROCHLOROTHIAZIDE [Concomitant]

REACTIONS (4)
  - ANAEMIA [None]
  - GASTRIC CANCER [None]
  - MELAENA [None]
  - SYNCOPE [None]
